FAERS Safety Report 21281353 (Version 1)
Quarter: 2022Q3

REPORT INFORMATION
  Report Type: Spontaneous
  Country: US (occurrence: US)
  Receive Date: 20220901
  Receipt Date: 20220901
  Transmission Date: 20221027
  Serious: Yes (Death, Other)
  Sender: FDA-Public Use
  Company Number: US-PFIZER INC-202201091408

PATIENT
  Age: 66 Year
  Sex: Female

DRUGS (1)
  1. DEFEROXAMINE MESYLATE [Suspect]
     Active Substance: DEFEROXAMINE MESYLATE
     Dosage: 2000 MG
     Route: 042

REACTIONS (3)
  - Completed suicide [Fatal]
  - Apnoea [Unknown]
  - Hypotension [Unknown]
